FAERS Safety Report 9903217 (Version 1)
Quarter: 2014Q1

REPORT INFORMATION
  Report Type: Spontaneous
  Country: US (occurrence: US)
  Receive Date: 20140217
  Receipt Date: 20140217
  Transmission Date: 20141002
  Serious: No
  Sender: FDA-Public Use
  Company Number: US-ASTRAZENECA-2013SE68527

PATIENT
  Age: 66 Year
  Sex: Female
  Weight: 71.2 kg

DRUGS (4)
  1. ATENOLOL [Suspect]
     Indication: HYPERTENSION
     Route: 048
  2. CRESTOR [Suspect]
     Indication: LOW DENSITY LIPOPROTEIN INCREASED
     Route: 048
     Dates: start: 20130830
  3. UNSPECIFIED CHOLESTROL MEDICATION [Suspect]
     Indication: BLOOD CHOLESTEROL ABNORMAL
     Route: 065
  4. TUMS [Concomitant]

REACTIONS (1)
  - Muscle spasms [Unknown]
